FAERS Safety Report 6429444-3 (Version None)
Quarter: 2009Q4

REPORT INFORMATION
  Report Type: 
  Country: None (occurrence: None)
  Receive Date: 20091105
  Receipt Date: 20090611
  Transmission Date: 20100525
  Serious: Yes (Hospitalization)
  Sender: FDA-Public Use
  Company Number: US-ABBOTT-09P-163-0579286-00

PATIENT
  Sex: Male
  Weight: 97.61 kg

DRUGS (9)
  1. KALETRA [Suspect]
     Indication: HIV INFECTION
     Dates: start: 20070101
  2. LEXA [Concomitant]
     Indication: DRUG USE FOR UNKNOWN INDICATION
  3. COZAAR [Concomitant]
     Indication: BLOOD PRESSURE
  4. DOXAZOSIN [Concomitant]
     Indication: DRUG USE FOR UNKNOWN INDICATION
  5. DIFLUCAN [Concomitant]
     Indication: DRUG USE FOR UNKNOWN INDICATION
  6. VALTREX [Concomitant]
     Indication: DRUG USE FOR UNKNOWN INDICATION
  7. HYDROCHLOROTHIAZIDE [Concomitant]
     Indication: DRUG USE FOR UNKNOWN INDICATION
  8. TRAZODONE HCL [Concomitant]
     Indication: DRUG USE FOR UNKNOWN INDICATION
  9. LEXIVA [Concomitant]
     Indication: DRUG USE FOR UNKNOWN INDICATION

REACTIONS (1)
  - ARTHRALGIA [None]
